FAERS Safety Report 9302705 (Version 3)
Quarter: 2013Q4

REPORT INFORMATION
  Report Type: Spontaneous
  Country: IT (occurrence: IT)
  Receive Date: 20130522
  Receipt Date: 20131023
  Transmission Date: 20140711
  Serious: Yes (Hospitalization, Other)
  Sender: FDA-Public Use
  Company Number: IT-UCBSA-085960

PATIENT
  Age: 52 Year
  Sex: Male

DRUGS (7)
  1. KEPPRA [Suspect]
     Indication: GLIOBLASTOMA
     Dosage: 500 MG 60 FILM COATED TABLETS
     Route: 048
     Dates: start: 20130213, end: 20130401
  2. TEMODAL [Suspect]
     Indication: GLIOBLASTOMA
     Dosage: 5 MG 5 HARD CAPSULES
     Route: 048
     Dates: start: 20130213, end: 20130401
  3. TEMOZOLOMIDE SUN [Suspect]
     Indication: GLIOBLASTOMA
     Dosage: 140 MG 5 HARD CAPSULES
     Route: 048
     Dates: start: 20130213, end: 20130401
  4. LOSARTAN [Concomitant]
     Indication: HYPERTENSION
     Dosage: DOSE PER INTAKE: 125 MG
     Route: 048
  5. UGUROL [Concomitant]
     Dosage: 500MG/5ML 5 VIALS IV INJECTABLE SOLUTION, DOSE PER INTAKE: 1500 MG
  6. PARIET [Concomitant]
     Dosage: 20 MG 14 GASTRORESISTANT TABLETS, DOSE PER INTAKE: 20 MG
  7. SOLDESAM [Concomitant]
     Dosage: 8MG/ML 3 VIALS INJECTABLE SOLUTION, DOSE PER INTAKE: 8MG
     Route: 030

REACTIONS (1)
  - Thrombocytopenia [Not Recovered/Not Resolved]
